FAERS Safety Report 24344605 (Version 1)
Quarter: 2024Q3

REPORT INFORMATION
  Report Type: Spontaneous
  Country: CH (occurrence: CH)
  Receive Date: 20240920
  Receipt Date: 20240920
  Transmission Date: 20241016
  Serious: Yes (Other)
  Sender: NOVARTIS
  Company Number: CH-002147023-NVSC2024CH186840

PATIENT
  Sex: Male
  Weight: 3.175 kg

DRUGS (4)
  1. KESIMPTA [Suspect]
     Active Substance: OFATUMUMAB
     Indication: Foetal exposure during pregnancy
     Dosage: UNK (MATERNAL EXPOSURE BEFORE PREGNANCY: UNKNOWN (ROUTE - TRANSPLACENTAL))
     Route: 050
     Dates: end: 20231226
  2. NATALBEN SUPRA [Concomitant]
     Active Substance: MINERALS\OMEGA-3 FATTY ACIDS\VITAMINS
     Indication: Product used for unknown indication
     Dosage: UNK, QD
     Route: 065
  3. SALMAGNE [Concomitant]
     Indication: Product used for unknown indication
     Dosage: UNK, QD (1-2)
     Route: 065
  4. MAGNESIUM ASPARTATE HYDROCHLORIDE [Concomitant]
     Active Substance: MAGNESIUM ASPARTATE HYDROCHLORIDE
     Indication: Product used for unknown indication
     Dosage: UNK, QD (1-2)
     Route: 065

REACTIONS (6)
  - Meningitis [Unknown]
  - Vasa praevia [Unknown]
  - Premature baby [Unknown]
  - Urinary tract infection [Unknown]
  - Foetal exposure during pregnancy [Unknown]
  - Normal newborn [Unknown]
